FAERS Safety Report 9872845 (Version 2)
Quarter: 2014Q1

REPORT INFORMATION
  Report Type: Spontaneous
  Country: US (occurrence: US)
  Receive Date: 20140206
  Receipt Date: 20140206
  Transmission Date: 20141002
  Serious: No
  Sender: FDA-Public Use
  Company Number: US-ACORDA-ACO_100813_2013

PATIENT
  Age: 68 Year
  Sex: Female

DRUGS (3)
  1. AMPYRA [Suspect]
     Indication: GAIT DISTURBANCE
     Dosage: 10 MG, BID
     Dates: start: 20131204, end: 20131208
  2. AMPYRA [Suspect]
     Dosage: 10 MG, BID
     Route: 048
     Dates: start: 20131213
  3. TECFIDERA [Concomitant]
     Indication: PRODUCT USED FOR UNKNOWN INDICATION
     Dosage: UNK
     Route: 065

REACTIONS (3)
  - Diarrhoea [Recovered/Resolved]
  - Asthenia [Unknown]
  - Drug dose omission [Unknown]
